FAERS Safety Report 10137654 (Version 2)
Quarter: 2014Q2

REPORT INFORMATION
  Report Type: Spontaneous
  Country: MX (occurrence: None)
  Receive Date: 20140425
  Receipt Date: 20140509
  Transmission Date: 20141212
  Serious: Yes (Hospitalization)
  Sender: FDA-Public Use
  Company Number: PRED20140027

PATIENT
  Age: 17 Year
  Sex: Male
  Weight: 80 kg

DRUGS (2)
  1. PREDNISONE [Suspect]
     Indication: DERMATOSIS
     Dosage: 50 MG, 1 IN 1 D, ORAL
     Route: 048
  2. DEXAMETHAZONE [Suspect]
     Indication: DERMATOSIS
     Dosage: UNK, EVERY THIRD DAY, INTRAMUSCULAR
     Route: 030

REACTIONS (19)
  - Acne fulminans [None]
  - Weight increased [None]
  - Asthenia [None]
  - Gynaecomastia [None]
  - Skin striae [None]
  - Rash papular [None]
  - Rash pustular [None]
  - Myalgia [None]
  - Arthralgia [None]
  - Purulence [None]
  - Pyrexia [None]
  - Pseudocyst [None]
  - Scab [None]
  - Ulcer [None]
  - Necrosis [None]
  - Leukocytosis [None]
  - Neutrophilia [None]
  - Cushing^s syndrome [None]
  - Incorrect drug administration duration [None]
